FAERS Safety Report 25876293 (Version 5)
Quarter: 2025Q4

REPORT INFORMATION
  Report Type: Spontaneous
  Country: EU (occurrence: EU)
  Receive Date: 20251003
  Receipt Date: 20251021
  Transmission Date: 20260119
  Serious: Yes (Other)
  Sender: BRISTOL-MYERS SQUIBB COMPANY
  Company Number: EU-BRISTOL-MYERS SQUIBB COMPANY-2025-134358

PATIENT
  Age: 79 Year
  Sex: Female

DRUGS (3)
  1. ELIQUIS [Suspect]
     Active Substance: APIXABAN
     Indication: Product used for unknown indication
     Dosage: AT NIGHT I TAKE ELIQUIS
  2. LORAZEPAM [Suspect]
     Active Substance: LORAZEPAM
     Indication: Product used for unknown indication
     Dosage: AT NIGHT I TAKE ELIQUIS AND AN ORFIDAL, THEN DURING THE DAY I TAKE A QUARTER AND A HALF
  3. ALPRAZOLAM [Concomitant]
     Active Substance: ALPRAZOLAM
     Indication: Product used for unknown indication

REACTIONS (18)
  - Drug dependence [Unknown]
  - Arrhythmia [Unknown]
  - Malaise [Unknown]
  - Asthenia [Unknown]
  - Nausea [Unknown]
  - Fatigue [Unknown]
  - Headache [Unknown]
  - Dizziness [Unknown]
  - Blood pressure decreased [Unknown]
  - Orthostatic intolerance [Unknown]
  - Fall [Unknown]
  - Brain fog [Unknown]
  - Drug tolerance [Unknown]
  - Nervous system disorder [Unknown]
  - Autonomic nervous system imbalance [Unknown]
  - Hypertension [Unknown]
  - Anxiety [Unknown]
  - Agitation [Unknown]

NARRATIVE: CASE EVENT DATE: 20240101
